FAERS Safety Report 5841682-7 (Version None)
Quarter: 2008Q3

REPORT INFORMATION
  Report Type: 
  Country: None (occurrence: None)
  Receive Date: 20080811
  Receipt Date: 20080811
  Transmission Date: 20090109
  Serious: Yes (Life-Threatening)
  Sender: FDA-Public Use
  Company Number: None

PATIENT
  Age: 80 Year
  Sex: Female

DRUGS (1)
  1. VANCOMYCIN [Suspect]
     Dates: start: 20080722, end: 20080807

REACTIONS (1)
  - THROMBOCYTOPENIA [None]
